FAERS Safety Report 13029399 (Version 1)
Quarter: 2016Q4

REPORT INFORMATION
  Report Type: Spontaneous
  Country: US (occurrence: US)
  Receive Date: 20161215
  Receipt Date: 20161215
  Transmission Date: 20170207
  Serious: Yes (Other)
  Sender: FDA-Public Use
  Company Number: US-PAR PHARMACEUTICAL COMPANIES-2016SCPR016207

PATIENT
  Age: 28 Year
  Sex: Male

DRUGS (1)
  1. KETALAR [Suspect]
     Active Substance: KETAMINE HYDROCHLORIDE
     Indication: SPINAL PAIN
     Dosage: UNK UNK, UNKNOWN
     Route: 051

REACTIONS (2)
  - Diabetes insipidus [Recovered/Resolved]
  - Off label use [Unknown]
